FAERS Safety Report 19014749 (Version 3)
Quarter: 2021Q2

REPORT INFORMATION
  Report Type: Spontaneous
  Country: SE (occurrence: SE)
  Receive Date: 20210316
  Receipt Date: 20210401
  Transmission Date: 20210717
  Serious: Yes (Other)
  Sender: FDA-Public Use
  Company Number: SE-PFIZER INC-2021251793

PATIENT
  Age: 79 Year
  Sex: Female

DRUGS (1)
  1. XALATAN [Suspect]
     Active Substance: LATANOPROST
     Dosage: UNK
     Dates: start: 2011

REACTIONS (6)
  - Visual impairment [Unknown]
  - Foreign body sensation in eyes [Unknown]
  - Sensory loss [Recovering/Resolving]
  - Cataract [Recovering/Resolving]
  - Dry eye [Unknown]
  - Vision blurred [Unknown]

NARRATIVE: CASE EVENT DATE: 2012
